FAERS Safety Report 10571266 (Version 1)
Quarter: 2014Q4

REPORT INFORMATION
  Report Type: Spontaneous
  Country: US (occurrence: US)
  Receive Date: 20141107
  Receipt Date: 20141107
  Transmission Date: 20150529
  Serious: Yes (Hospitalization, Other)
  Sender: FDA-Public Use
  Company Number: US-009507513-1411USA001791

PATIENT
  Age: 57 Year
  Sex: Female
  Weight: 114.8 kg

DRUGS (5)
  1. GLIPIZIDE XL [Suspect]
     Active Substance: GLIPIZIDE
     Dosage: 5 MG, WITH DINNER
     Route: 048
  2. GLIPIZIDE XL [Suspect]
     Active Substance: GLIPIZIDE
     Dosage: 10 MG WITH BREAKFAST
     Route: 048
  3. ESOMEPRAZOLE MAGNESIUM. [Concomitant]
     Active Substance: ESOMEPRAZOLE MAGNESIUM
     Dosage: 40 MG, QD
     Route: 048
  4. JANUVIA [Suspect]
     Active Substance: SITAGLIPTIN PHOSPHATE
     Indication: TYPE 2 DIABETES MELLITUS
     Dosage: 100 MG, QD
     Route: 048
  5. PRINIVIL [Concomitant]
     Active Substance: LISINOPRIL
     Dosage: 20 MG, QD
     Route: 048

REACTIONS (1)
  - Pancreatitis acute [Recovered/Resolved]
